FAERS Safety Report 19473122 (Version 2)
Quarter: 2023Q1

REPORT INFORMATION
  Report Type: Spontaneous
  Country: SE (occurrence: SE)
  Receive Date: 20210629
  Receipt Date: 20230331
  Transmission Date: 20230417
  Serious: Yes (Life-Threatening, Hospitalization, Disabling)
  Sender: FDA-Public Use
  Company Number: None

PATIENT
  Age: 76 Year
  Sex: Female
  Weight: 60 kg

DRUGS (2)
  1. ETANERCEPT [Suspect]
     Active Substance: ETANERCEPT
     Indication: Rheumatoid arthritis
     Dosage: BENEPALI 50 MG LIQUID FOR INJECTION, SOLUTION IN PRE-FILLED SYRINGE
     Route: 065
     Dates: start: 20200803
  2. VAXZEVRIA [Suspect]
     Active Substance: AZD-1222
     Indication: Product used for unknown indication
     Dosage: UNKNOWN, SOLUTION FOR INJECTION, SUSPENSION, FIRST DOSE.
     Route: 065
     Dates: start: 20210419

REACTIONS (2)
  - Vaccination site pain [Recovering/Resolving]
  - Arthritis bacterial [Recovered/Resolved with Sequelae]

NARRATIVE: CASE EVENT DATE: 20210419
